FAERS Safety Report 19020962 (Version 11)
Quarter: 2023Q1

REPORT INFORMATION
  Report Type: Report from Study
  Country: CA (occurrence: CA)
  Receive Date: 20210317
  Receipt Date: 20230105
  Transmission Date: 20230417
  Serious: Yes (Other)
  Sender: FDA-Public Use
  Company Number: NVSC2019CA066905

PATIENT
  Age: 53 Year
  Sex: Female

DRUGS (13)
  1. ERELZI [Suspect]
     Active Substance: ETANERCEPT-SZZS
     Indication: Ankylosing spondylitis
     Dosage: 50 MG, QW
     Route: 058
     Dates: start: 20191120
  2. ERELZI [Suspect]
     Active Substance: ETANERCEPT-SZZS
     Dosage: 50 MG, QW
     Route: 058
     Dates: start: 20200217
  3. ERELZI [Suspect]
     Active Substance: ETANERCEPT-SZZS
     Dosage: 50 MG, QW
     Route: 058
     Dates: start: 20220203
  4. ERELZI [Suspect]
     Active Substance: ETANERCEPT-SZZS
     Dosage: 50 MG, QW
     Route: 058
     Dates: start: 20221026
  5. ERELZI [Suspect]
     Active Substance: ETANERCEPT-SZZS
     Dosage: 50 MG, QW
     Route: 058
     Dates: start: 20221109
  6. ERELZI [Suspect]
     Active Substance: ETANERCEPT-SZZS
     Dosage: 50 MG, Q5W
     Route: 058
  7. METHOTREXATE [Concomitant]
     Active Substance: METHOTREXATE
     Indication: Product used for unknown indication
     Dosage: UNK
     Route: 065
  8. IBUPROFEN [Concomitant]
     Active Substance: IBUPROFEN
     Indication: Product used for unknown indication
     Dosage: UNK
     Route: 065
  9. CELEBREX [Concomitant]
     Active Substance: CELECOXIB
     Indication: Product used for unknown indication
     Dosage: UNK
     Route: 065
  10. NAPROXEN [Concomitant]
     Active Substance: NAPROXEN
     Indication: Product used for unknown indication
     Dosage: UNK
     Route: 065
  11. HYDROMORPHONE HYDROCHLORIDE [Concomitant]
     Active Substance: HYDROMORPHONE HYDROCHLORIDE
     Indication: Product used for unknown indication
     Dosage: UNK
     Route: 065
  12. MORPHINE [Concomitant]
     Active Substance: MORPHINE
     Indication: Product used for unknown indication
     Dosage: UNK
     Route: 065
  13. SULFASALAZINE [Concomitant]
     Active Substance: SULFASALAZINE
     Indication: Product used for unknown indication
     Dosage: UNK
     Route: 065

REACTIONS (13)
  - Rheumatoid arthritis [Unknown]
  - Lower respiratory tract infection [Unknown]
  - Cyst [Unknown]
  - Pulmonary function test decreased [Not Recovered/Not Resolved]
  - Cardiac disorder [Unknown]
  - Malaise [Recovering/Resolving]
  - Arthralgia [Recovering/Resolving]
  - COVID-19 [Unknown]
  - Illness [Unknown]
  - Hypoaesthesia [Unknown]
  - Nasopharyngitis [Unknown]
  - Oropharyngeal pain [Unknown]
  - Influenza [Unknown]

NARRATIVE: CASE EVENT DATE: 20200220
